FAERS Safety Report 7178811-1 (Version None)
Quarter: 2010Q4

REPORT INFORMATION
  Report Type: 
  Country: None (occurrence: None)
  Receive Date: 20101221
  Receipt Date: 20101208
  Transmission Date: 20110411
  Serious: Yes (Hospitalization, Other)
  Sender: FDA-Public Use
  Company Number: US-ELI_LILLY_AND_COMPANY-US201012002672

PATIENT
  Sex: Female

DRUGS (9)
  1. FORTEO [Suspect]
     Indication: OSTEOPOROSIS
     Dosage: 20 UG, DAILY (1/D)
     Dates: start: 20100831, end: 20101124
  2. GLYBURIDE [Concomitant]
  3. METFORMIN [Concomitant]
  4. PRILOSEC [Concomitant]
  5. GABAPENTIN [Concomitant]
  6. LANTUS [Concomitant]
  7. NOVOLOG [Concomitant]
  8. SIMVASTATIN [Concomitant]
  9. SUPER B COMPLEX [Concomitant]

REACTIONS (4)
  - CHEST PAIN [None]
  - HEADACHE [None]
  - HIATUS HERNIA [None]
  - MUSCLE SPASMS [None]
